FAERS Safety Report 21546979 (Version 4)
Quarter: 2023Q1

REPORT INFORMATION
  Report Type: Spontaneous
  Country: US (occurrence: US)
  Receive Date: 20221103
  Receipt Date: 20230320
  Transmission Date: 20230418
  Serious: Yes (Hospitalization, Other)
  Sender: FDA-Public Use
  Company Number: US-BRISTOL-MYERS SQUIBB COMPANY-2022-131223

PATIENT
  Age: 75 Year
  Sex: Male

DRUGS (1)
  1. REVLIMID [Suspect]
     Active Substance: LENALIDOMIDE
     Indication: Plasma cell myeloma
     Dosage: TAKE 1 CAPSULE BY MOUTH EVERY DAY ON DAYS 1-21 THEN 7 DAYS OFF. DO NOT BREAK, CHEW OR OPEN CAPSULES
     Route: 048
     Dates: start: 20220909

REACTIONS (5)
  - Influenza [Recovered/Resolved]
  - Sinusitis [Unknown]
  - Cellulitis [Recovering/Resolving]
  - Bronchitis [Recovering/Resolving]
  - Taste disorder [Recovering/Resolving]
